FAERS Safety Report 12078548 (Version 2)
Quarter: 2016Q1

REPORT INFORMATION
  Report Type: Spontaneous
  Country: FR (occurrence: FR)
  Receive Date: 20160216
  Receipt Date: 20160304
  Transmission Date: 20160526
  Serious: Yes (Other)
  Sender: FDA-Public Use
  Company Number: FR-009507513-1602FRA006687

PATIENT
  Sex: Male

DRUGS (9)
  1. FUROSEMIDE. [Suspect]
     Active Substance: FUROSEMIDE
     Indication: OEDEMA
     Dosage: 20 MG, QD
     Route: 042
     Dates: start: 20160104, end: 20160111
  2. ALKERAN (MELPHALAN HYDROCHLORIDE) [Suspect]
     Active Substance: MELPHALAN HYDROCHLORIDE
     Indication: LYMPHOMA
     Dosage: 242 MG, ONCE
     Route: 042
     Dates: start: 20160110, end: 20160110
  3. ZOPHREN (ONDANSETRON HYDROCHLORIDE) [Suspect]
     Active Substance: ONDANSETRON HYDROCHLORIDE
     Indication: PROPHYLAXIS
     Dosage: 8 MG, QD
     Route: 048
     Dates: start: 20160105, end: 20160112
  4. ARACYTINE [Suspect]
     Active Substance: CYTARABINE
     Indication: LYMPHOMA
     Dosage: 346 MG, QD
     Route: 042
     Dates: start: 20160106, end: 20160109
  5. HEPARIN SODIUM. [Suspect]
     Active Substance: HEPARIN SODIUM
     Indication: PROPHYLAXIS
     Dosage: 6000 IU, QD
     Route: 042
     Dates: start: 20160104, end: 20160111
  6. ETOPOSIDE. [Suspect]
     Active Substance: ETOPOSIDE
     Indication: LYMPHOMA
     Dosage: 346 MG, QD
     Route: 042
     Dates: start: 20160106, end: 20160109
  7. EMEND [Suspect]
     Active Substance: APREPITANT
     Indication: PROPHYLAXIS
     Dosage: 80 MG, QD
     Route: 048
     Dates: start: 20160104, end: 20160113
  8. ALLOPURINOL. [Suspect]
     Active Substance: ALLOPURINOL
     Indication: PROPHYLAXIS
     Dosage: 100 MG, QD
     Route: 048
     Dates: start: 20160104, end: 20160112
  9. BICNU [Suspect]
     Active Substance: CARMUSTINE
     Indication: LYMPHOMA
     Dosage: 520 MG, ONCE
     Route: 042
     Dates: start: 20160105, end: 20160105

REACTIONS (4)
  - Rash maculo-papular [Recovered/Resolved]
  - Dermatitis exfoliative [Recovered/Resolved]
  - Dermatitis bullous [Recovered/Resolved]
  - Skin exfoliation [Recovering/Resolving]
